FAERS Safety Report 15589690 (Version 2)
Quarter: 2025Q3

REPORT INFORMATION
  Report Type: Spontaneous
  Country: US (occurrence: US)
  Receive Date: 20181106
  Receipt Date: 20250819
  Transmission Date: 20251021
  Serious: Yes (Other)
  Sender: MACLEODS
  Company Number: None

PATIENT

DRUGS (1)
  1. SILDENAFIL [Suspect]
     Active Substance: SILDENAFIL
     Indication: Product used for unknown indication
     Route: 065

REACTIONS (6)
  - Retinal toxicity [Not Recovered/Not Resolved]
  - Overdose [Unknown]
  - Photopsia [Recovered/Resolved]
  - Erythropsia [Not Recovered/Not Resolved]
  - Loss of visual contrast sensitivity [Not Recovered/Not Resolved]
  - Chromatopsia [Not Recovered/Not Resolved]
